FAERS Safety Report 12702961 (Version 3)
Quarter: 2017Q1

REPORT INFORMATION
  Report Type: Report from Study
  Country: CN (occurrence: CN)
  Receive Date: 20160831
  Receipt Date: 20170331
  Transmission Date: 20170428
  Serious: Yes (Other)
  Sender: FDA-Public Use
  Company Number: CN-GLAXOSMITHKLINE-CN2016086099

PATIENT
  Age: 61 Year
  Sex: Male
  Weight: 67 kg

DRUGS (23)
  1. TELMISARTAN. [Concomitant]
     Active Substance: TELMISARTAN
     Indication: CORONARY ARTERY DISEASE
     Dates: start: 201606, end: 201606
  2. TRIMETAZIDINE DIHYDROCHLORIDE TABLETS [Concomitant]
     Indication: CORONARY ARTERY DISEASE
     Dates: start: 20160601, end: 20160701
  3. AMLODIPINE [Concomitant]
     Active Substance: AMLODIPINE BESYLATE
     Indication: HUMAN T-CELL LYMPHOTROPIC VIRUS TYPE I INFECTION
     Dates: start: 201606, end: 201606
  4. COMPOUND IPRATROPIUM BROMIDE AEROSOL [Concomitant]
     Indication: CHRONIC OBSTRUCTIVE PULMONARY DISEASE
     Dates: start: 201606, end: 201606
  5. SALVIANOLATE [Concomitant]
     Active Substance: HERBALS
     Indication: CORONARY ARTERY DISEASE
     Dates: start: 201606, end: 201606
  6. GLIQUIDONE TABLETS [Concomitant]
     Indication: TYPE 2 DIABETES MELLITUS
     Dates: start: 201606, end: 201606
  7. VITAMIN B6 [Concomitant]
     Active Substance: PYRIDOXINE HYDROCHLORIDE
     Indication: GASTROOESOPHAGEAL REFLUX DISEASE
     Dates: start: 201606, end: 201606
  8. DOXOFYLLINE [Concomitant]
     Active Substance: DOXOFYLLINE
     Indication: CHRONIC OBSTRUCTIVE PULMONARY DISEASE
     Dates: start: 201606, end: 201606
  9. UMECLIDINIUM BR+VILANTEROL TRIFENATATE [Suspect]
     Active Substance: UMECLIDINIUM BROMIDE\VILANTEROL TRIFENATATE
     Indication: CHRONIC OBSTRUCTIVE PULMONARY DISEASE
     Dosage: 1 PUFF(S), QD
     Route: 055
     Dates: start: 20151118
  10. IRBESARTAN AND HYDROCHLOROTHIAZIDE TABLETS [Concomitant]
     Indication: HUMAN T-CELL LYMPHOTROPIC VIRUS TYPE I INFECTION
     Dates: start: 201606
  11. THEOPHYLLINE [Concomitant]
     Active Substance: THEOPHYLLINE ANHYDROUS
     Indication: CHRONIC OBSTRUCTIVE PULMONARY DISEASE
     Dates: start: 201606, end: 201606
  12. DYPHYLLINE [Concomitant]
     Active Substance: DYPHYLLINE
     Indication: CHRONIC OBSTRUCTIVE PULMONARY DISEASE
     Dates: start: 201606, end: 201606
  13. MUCOSOLVAN [Concomitant]
     Active Substance: AMBROXOL HYDROCHLORIDE
     Indication: LOWER RESPIRATORY TRACT INFECTION
     Dates: start: 201606, end: 201606
  14. PANTOPRAZOLE [Concomitant]
     Active Substance: PANTOPRAZOLE SODIUM
     Indication: GASTROOESOPHAGEAL REFLUX DISEASE
     Dates: start: 201606
  15. REDUCED GLUTATHIONE [Concomitant]
     Indication: HEPATIC FUNCTION ABNORMAL
     Dates: start: 201606, end: 201606
  16. CEFOTAXIME SODIUM + SULBACTAM SODIUM [Concomitant]
     Indication: LOWER RESPIRATORY TRACT INFECTION
     Dates: start: 201606, end: 201606
  17. OXYGEN THERAPY [Concomitant]
     Active Substance: OXYGEN
     Indication: CHRONIC OBSTRUCTIVE PULMONARY DISEASE
  18. ACARBOSE TABLETS [Concomitant]
     Active Substance: ACARBOSE
     Indication: TYPE 2 DIABETES MELLITUS
     Dates: start: 201606
  19. BIFID TRIPLE VIABLE CAPSULE [Concomitant]
     Indication: DYSBACTERIOSIS
     Dates: start: 201606
  20. ROSUVASTATIN CALCIUM TABLETS [Concomitant]
     Active Substance: ROSUVASTATIN CALCIUM
     Indication: LIPID METABOLISM DISORDER
     Dates: start: 201606, end: 201606
  21. POLYENE PHOSPHATIDYLCHOLINE [Concomitant]
     Active Substance: PHOSPHOLIPID
     Indication: HEPATIC FUNCTION ABNORMAL
     Dates: start: 201606, end: 201606
  22. GLUCOPHAGE [Concomitant]
     Active Substance: METFORMIN HYDROCHLORIDE
     Dates: start: 201606
  23. ACETYLCYSTEINE. [Concomitant]
     Active Substance: ACETYLCYSTEINE
     Indication: CHRONIC OBSTRUCTIVE PULMONARY DISEASE
     Dates: start: 201606, end: 201606

REACTIONS (1)
  - Angina unstable [Recovered/Resolved]

NARRATIVE: CASE EVENT DATE: 20160531
